FAERS Safety Report 8285472-7 (Version None)
Quarter: 2012Q2

REPORT INFORMATION
  Report Type: 
  Country: None (occurrence: None)
  Receive Date: 20120413
  Receipt Date: 20120120
  Transmission Date: 20120825
  Serious: No
  Sender: FDA-Public Use
  Company Number: US-ASTRAZENECA-2012SE04383

PATIENT
  Age: 79 Year
  Sex: Male
  Weight: 92.5 kg

DRUGS (5)
  1. COREG [Concomitant]
  2. PLAVIX [Concomitant]
  3. NEXIUM [Suspect]
     Indication: GASTROOESOPHAGEAL REFLUX DISEASE
     Route: 048
     Dates: start: 19960101
  4. NEXIUM [Suspect]
     Route: 048
     Dates: start: 20111228
  5. ASPIRIN [Concomitant]

REACTIONS (2)
  - OESOPHAGEAL DISORDER [None]
  - DRUG DOSE OMISSION [None]
